FAERS Safety Report 5345344-4 (Version None)
Quarter: 2007Q2

REPORT INFORMATION
  Report Type: 
  Country: None (occurrence: None)
  Receive Date: 20070601
  Receipt Date: 20070521
  Transmission Date: 20071010
  Serious: Yes (Other)
  Sender: FDA-Public Use
  Company Number: C211

PATIENT
  Sex: Female

DRUGS (1)
  1. PRANACTIN -CITRIC [Suspect]
     Indication: HELICOBACTER INFECTION
     Dosage: ONE POUCH PER TEST (3G)
     Dates: start: 20070521

REACTIONS (2)
  - DYSPEPSIA [None]
  - THROAT IRRITATION [None]
